FAERS Safety Report 17164250 (Version 2)
Quarter: 2020Q1

REPORT INFORMATION
  Report Type: Spontaneous
  Country: US (occurrence: US)
  Receive Date: 20191217
  Receipt Date: 20200106
  Transmission Date: 20200409
  Serious: No
  Sender: FDA-Public Use
  Company Number: US-PFIZER INC-2019540270

PATIENT
  Age: 40 Year
  Sex: Female

DRUGS (1)
  1. BOSULIF [Suspect]
     Active Substance: BOSUTINIB MONOHYDRATE
     Dosage: 100 MG, DAILY
     Dates: start: 20191202

REACTIONS (10)
  - Headache [Unknown]
  - Vision blurred [Unknown]
  - Arthralgia [Unknown]
  - Nausea [Unknown]
  - Neck pain [Unknown]
  - Pain in jaw [Unknown]
  - Anxiety [Unknown]
  - Bone pain [Unknown]
  - Dyspnoea [Unknown]
  - Cough [Unknown]
